FAERS Safety Report 17637510 (Version 1)
Quarter: 2020Q2

REPORT INFORMATION
  Report Type: Spontaneous
  Country: US (occurrence: US)
  Receive Date: 20200407
  Receipt Date: 20200407
  Transmission Date: 20200713
  Serious: Yes (Hospitalization)
  Sender: FDA-Public Use
  Company Number: None

PATIENT
  Sex: Female

DRUGS (4)
  1. METHOTREXATE. [Concomitant]
     Active Substance: METHOTREXATE
     Dates: start: 20200131
  2. RINVOQ [Concomitant]
     Active Substance: UPADACITINIB
     Dates: start: 20200124
  3. XELJANZ [Suspect]
     Active Substance: TOFACITINIB CITRATE
     Indication: RHEUMATOID ARTHRITIS
     Dosage: ?          OTHER FREQUENCY:TWICE DAILY;?
     Route: 048
     Dates: start: 20191025
  4. MELOXICAM. [Concomitant]
     Active Substance: MELOXICAM
     Dates: start: 20190131

REACTIONS (3)
  - Condition aggravated [None]
  - Depression [None]
  - Rheumatoid arthritis [None]
